FAERS Safety Report 5121063-4 (Version None)
Quarter: 2006Q4

REPORT INFORMATION
  Report Type: 
  Country: None (occurrence: None)
  Receive Date: 20061002
  Receipt Date: 20060911
  Transmission Date: 20070319
  Serious: Yes (Other)
  Sender: FDA-Public Use
  Company Number: T06-CAN-02619-01

PATIENT
  Age: 85 Year
  Sex: Male

DRUGS (8)
  1. CIPRALEX (ESCITALOPRAM) [Suspect]
     Indication: DEPRESSION
     Dosage: 10 MG QD PO
     Route: 048
     Dates: start: 20060308, end: 20060616
  2. CIPRALEX (ESCITALOPRAM) [Suspect]
     Indication: DEPRESSION
     Dosage: 5 MG QD PO
     Route: 048
     Dates: start: 20060617, end: 20060623
  3. PHENOBARBITAL TAB [Concomitant]
  4. ALTACE [Concomitant]
  5. FUROSEMIDE [Concomitant]
  6. LIPITOR [Concomitant]
  7. NOVASEN (ACETYLSALICYLIC ACID) [Concomitant]
  8. ALLOPURINOL [Concomitant]

REACTIONS (3)
  - CEREBROVASCULAR ACCIDENT [None]
  - LEGAL PROBLEM [None]
  - LOSS OF CONSCIOUSNESS [None]
